FAERS Safety Report 6893227-0 (Version None)
Quarter: 2010Q3

REPORT INFORMATION
  Report Type: 
  Country: None (occurrence: None)
  Receive Date: 20100731
  Receipt Date: 20090713
  Transmission Date: 20110219
  Serious: No
  Sender: FDA-Public Use
  Company Number: US-PFIZER INC-2009217459

PATIENT
  Sex: Female
  Weight: 60.771 kg

DRUGS (3)
  1. NORVASC [Suspect]
     Dosage: 5 MG, 1X/DAY
     Dates: start: 20090401
  2. LISINOPRIL [Concomitant]
     Dosage: UNK
  3. ACETYLSALICYLIC ACID [Concomitant]
     Dosage: UNK

REACTIONS (4)
  - DRY EYE [None]
  - ERYTHEMA [None]
  - RASH [None]
  - WEIGHT DECREASED [None]
